FAERS Safety Report 8061411-9 (Version None)
Quarter: 2012Q1

REPORT INFORMATION
  Report Type: 
  Country: None (occurrence: None)
  Receive Date: 20120120
  Receipt Date: 20111013
  Transmission Date: 20120608
  Serious: No
  Sender: FDA-Public Use
  Company Number: US-ALLERGAN-1113517US

PATIENT
  Age: 62 Year
  Sex: Female

DRUGS (2)
  1. RESTASIS [Suspect]
     Indication: DRY EYE
     Dosage: 1 GTT, BID
     Route: 047
     Dates: start: 20110901
  2. REFRESH CLASSIC [Concomitant]
     Indication: DRY EYE
     Dosage: UNK
     Route: 047
     Dates: start: 20110901

REACTIONS (5)
  - SKIN IRRITATION [None]
  - EYELID PAIN [None]
  - EYE IRRITATION [None]
  - ERYTHEMA [None]
  - LACRIMATION INCREASED [None]
